FAERS Safety Report 18927556 (Version 2)
Quarter: 2024Q1

REPORT INFORMATION
  Report Type: Report from Study
  Country: JP (occurrence: JP)
  Receive Date: 20210223
  Receipt Date: 20240314
  Transmission Date: 20240409
  Serious: Yes (Hospitalization)
  Sender: FDA-Public Use
  Company Number: JP-RECORDATI RARE DISEASES INC.-2021000643

PATIENT

DRUGS (7)
  1. NEOPROFEN [Suspect]
     Active Substance: IBUPROFEN LYSINE
     Indication: Patent ductus arteriosus
     Dosage: 13 MG
     Route: 042
     Dates: start: 20201121, end: 20201121
  2. DOPAMINE HYDROCHLORIDE [Concomitant]
     Active Substance: DOPAMINE HYDROCHLORIDE
     Indication: Patent ductus arteriosus
     Dosage: UNK
     Route: 042
     Dates: start: 20201121, end: 20201125
  3. PHENOBARBITAL SODIUM [Concomitant]
     Active Substance: PHENOBARBITAL SODIUM
     Indication: Sedation
     Dosage: UNK
     Route: 042
     Dates: start: 20201120, end: 20201121
  4. AMPICILLIN [Concomitant]
     Active Substance: AMPICILLIN
     Indication: Prophylaxis
     Dosage: UNK
     Route: 042
     Dates: start: 20201120, end: 20201123
  5. AMIKACIN [Concomitant]
     Active Substance: AMIKACIN
     Indication: Prophylaxis
     Dosage: UNK
     Route: 042
     Dates: start: 20201120, end: 20201123
  6. LASIX [Concomitant]
     Active Substance: FUROSEMIDE
     Indication: Patent ductus arteriosus
     Dosage: UNK
     Route: 042
     Dates: start: 20201120, end: 20201122
  7. CAFFEINE [Concomitant]
     Active Substance: CAFFEINE
     Indication: Apnoeic attack
     Dosage: UNK
     Route: 042
     Dates: start: 20201120, end: 20201127

REACTIONS (2)
  - Pneumothorax [Recovering/Resolving]
  - Renal disorder [Recovering/Resolving]

NARRATIVE: CASE EVENT DATE: 20201121
